FAERS Safety Report 5972233-4 (Version None)
Quarter: 2008Q4

REPORT INFORMATION
  Report Type: 
  Country: None (occurrence: None)
  Receive Date: 20081201
  Receipt Date: 20071119
  Transmission Date: 20090506
  Serious: No
  Sender: FDA-Public Use
  Company Number: US-TEVA-165130USA

PATIENT
  Sex: Male

DRUGS (4)
  1. SALBUTAMOL SULFATE INHALATION, 0.09 MG [Suspect]
     Dosage: 2 PUFFS ONCE
     Route: 055
     Dates: start: 20071113
  2. AZITHROMYCIN [Concomitant]
  3. VICODIN [Concomitant]
  4. THRYROID REPLACEMENT [Concomitant]

REACTIONS (2)
  - LIP SWELLING [None]
  - ORAL DISCOMFORT [None]
